FAERS Safety Report 24557504 (Version 1)
Quarter: 2024Q4

REPORT INFORMATION
  Report Type: Spontaneous
  Country: AU (occurrence: AU)
  Receive Date: 20241028
  Receipt Date: 20241028
  Transmission Date: 20250114
  Serious: Yes (Other)
  Sender: ORGANON
  Company Number: AU-ASPEN-AUS2024AU006179

PATIENT
  Age: 44 Year
  Sex: Female

DRUGS (41)
  1. MIRTAZAPINE [Suspect]
     Active Substance: MIRTAZAPINE
     Indication: Anxiety
     Dosage: UNK
  2. MIRTAZAPINE [Suspect]
     Active Substance: MIRTAZAPINE
     Indication: Major depression
  3. SPRAVATO [Suspect]
     Active Substance: ESKETAMINE
     Indication: Anxiety
     Dosage: UNK, BIW (TWICE WEEKLY FOR 4 WEEKS)
  4. SPRAVATO [Suspect]
     Active Substance: ESKETAMINE
     Indication: Major depression
     Dosage: UNK, BIW (TWICE WEEKLY FOR 4 WEEKS)
     Dates: start: 202401, end: 202402
  5. SPRAVATO [Suspect]
     Active Substance: ESKETAMINE
     Dosage: 56 MILLIGRAM, BIW (56 MG 2 FOR THE FIRST WEEK)
  6. SPRAVATO [Suspect]
     Active Substance: ESKETAMINE
     Dosage: 84 MILLIGRAM, BIW (84 MG  2 FOR REMAINING 3 WEEKS)
  7. AGOMELATINE [Suspect]
     Active Substance: AGOMELATINE
     Indication: Anxiety
     Dosage: UNK
  8. AGOMELATINE [Suspect]
     Active Substance: AGOMELATINE
     Indication: Major depression
  9. BUPROPION HYDROCHLORIDE [Suspect]
     Active Substance: BUPROPION HYDROCHLORIDE
     Indication: Anxiety
     Dosage: UNK
  10. BUPROPION HYDROCHLORIDE [Suspect]
     Active Substance: BUPROPION HYDROCHLORIDE
     Indication: Major depression
  11. CLOMIPRAMINE HYDROCHLORIDE [Suspect]
     Active Substance: CLOMIPRAMINE HYDROCHLORIDE
     Indication: Anxiety
     Dosage: UNK
  12. CLOMIPRAMINE HYDROCHLORIDE [Suspect]
     Active Substance: CLOMIPRAMINE HYDROCHLORIDE
     Indication: Major depression
  13. DIAZEPAM [Suspect]
     Active Substance: DIAZEPAM
     Indication: Anxiety
     Dosage: 4.5 MILLIGRAM, QD
  14. DIAZEPAM [Suspect]
     Active Substance: DIAZEPAM
     Indication: Major depression
  15. DOXEPIN HYDROCHLORIDE [Suspect]
     Active Substance: DOXEPIN HYDROCHLORIDE
     Indication: Anxiety
     Dosage: UNK
  16. DOXEPIN HYDROCHLORIDE [Suspect]
     Active Substance: DOXEPIN HYDROCHLORIDE
     Indication: Major depression
  17. ESCITALOPRAM OXALATE [Suspect]
     Active Substance: ESCITALOPRAM OXALATE
     Indication: Anxiety
     Dosage: UNK
  18. ESCITALOPRAM OXALATE [Suspect]
     Active Substance: ESCITALOPRAM OXALATE
     Indication: Major depression
  19. FLUVOXAMINE MALEATE [Suspect]
     Active Substance: FLUVOXAMINE MALEATE
     Indication: Anxiety
     Dosage: UNK
  20. FLUVOXAMINE MALEATE [Suspect]
     Active Substance: FLUVOXAMINE MALEATE
     Indication: Major depression
  21. LAMOTRIGINE [Suspect]
     Active Substance: LAMOTRIGINE
     Indication: Anxiety
     Dosage: 200 MILLIGRAM, QD (INTERVAL: 1DAY)
  22. LAMOTRIGINE [Suspect]
     Active Substance: LAMOTRIGINE
     Indication: Major depression
  23. LITHIUM [Suspect]
     Active Substance: LITHIUM
     Indication: Anxiety
     Dosage: UNK
  24. LITHIUM [Suspect]
     Active Substance: LITHIUM
     Indication: Major depression
  25. NORTRIPTYLINE HYDROCHLORIDE [Suspect]
     Active Substance: NORTRIPTYLINE HYDROCHLORIDE
     Indication: Anxiety
     Dosage: UNK
  26. NORTRIPTYLINE HYDROCHLORIDE [Suspect]
     Active Substance: NORTRIPTYLINE HYDROCHLORIDE
     Indication: Major depression
  27. OLANZAPINE [Suspect]
     Active Substance: OLANZAPINE
     Indication: Anxiety
     Dosage: UNK
  28. OLANZAPINE [Suspect]
     Active Substance: OLANZAPINE
     Indication: Major depression
  29. PHENELZINE SULFATE [Suspect]
     Active Substance: PHENELZINE SULFATE
     Indication: Anxiety
     Dosage: UNK
  30. PHENELZINE SULFATE [Suspect]
     Active Substance: PHENELZINE SULFATE
     Indication: Major depression
  31. QUETIAPINE FUMARATE [Suspect]
     Active Substance: QUETIAPINE FUMARATE
     Indication: Anxiety
     Dosage: UNK
  32. QUETIAPINE FUMARATE [Suspect]
     Active Substance: QUETIAPINE FUMARATE
     Indication: Major depression
  33. REBOXETINE [Suspect]
     Active Substance: REBOXETINE
     Indication: Anxiety
     Dosage: UNK
  34. REBOXETINE [Suspect]
     Active Substance: REBOXETINE
     Indication: Major depression
  35. TRANYLCYPROMINE SULFATE [Suspect]
     Active Substance: TRANYLCYPROMINE SULFATE
     Indication: Anxiety
     Dosage: UNK
  36. TRANYLCYPROMINE SULFATE [Suspect]
     Active Substance: TRANYLCYPROMINE SULFATE
     Indication: Major depression
  37. VENLAFAXINE HYDROCHLORIDE [Suspect]
     Active Substance: VENLAFAXINE HYDROCHLORIDE
     Indication: Anxiety
     Dosage: UNK
  38. VENLAFAXINE HYDROCHLORIDE [Suspect]
     Active Substance: VENLAFAXINE HYDROCHLORIDE
     Indication: Major depression
  39. VORTIOXETINE HYDROBROMIDE [Suspect]
     Active Substance: VORTIOXETINE HYDROBROMIDE
     Indication: Anxiety
     Dosage: UNK
  40. VORTIOXETINE HYDROBROMIDE [Suspect]
     Active Substance: VORTIOXETINE HYDROBROMIDE
     Indication: Major depression
  41. SUVOREXANT [Concomitant]
     Active Substance: SUVOREXANT
     Indication: Sleep disorder therapy
     Dosage: UNK

REACTIONS (3)
  - Therapeutic product effect incomplete [Unknown]
  - Adverse drug reaction [Unknown]
  - Off label use [Unknown]
